FAERS Safety Report 9855606 (Version 1)
Quarter: 2013Q4

REPORT INFORMATION
  Report Type: Spontaneous
  Country: US (occurrence: None)
  Receive Date: 20131226
  Receipt Date: 20131226
  Transmission Date: 20140711
  Serious: Yes (Life-Threatening, Hospitalization, Other)
  Sender: FDA-Public Use
  Company Number: PHEH2012US019363

PATIENT
  Age: 67 Year
  Sex: Female
  Weight: 65 kg

DRUGS (1)
  1. VIVELLE DOT (ESTRADIOL) TRANS-THERAPEUTIC-SYSTEM [Suspect]
     Indication: HOT FLUSH
     Route: 062

REACTIONS (3)
  - Pulmonary embolism [None]
  - Chest pain [None]
  - Musculoskeletal pain [None]
